FAERS Safety Report 24684514 (Version 1)
Quarter: 2024Q4

REPORT INFORMATION
  Report Type: Spontaneous
  Country: MY (occurrence: MY)
  Receive Date: 20241202
  Receipt Date: 20241202
  Transmission Date: 20250114
  Serious: Yes (Life-Threatening, Hospitalization, Other)
  Sender: BRISTOL-MYERS SQUIBB COMPANY
  Company Number: MY-BRISTOL-MYERS SQUIBB COMPANY-2024-186534

PATIENT
  Age: 60 Year
  Sex: Female

DRUGS (1)
  1. ELIQUIS [Suspect]
     Active Substance: APIXABAN
     Indication: Atrial fibrillation

REACTIONS (1)
  - Thrombocytopenia [Recovering/Resolving]
